FAERS Safety Report 6099305-0 (Version None)
Quarter: 2009Q1

REPORT INFORMATION
  Report Type: 
  Country: None (occurrence: None)
  Receive Date: 20090303
  Receipt Date: 20090219
  Transmission Date: 20090719
  Serious: Yes (Other)
  Sender: FDA-Public Use
  Company Number: NO-JNJFOC-20090204625

PATIENT
  Sex: Female

DRUGS (2)
  1. TOPIMAX [Suspect]
     Indication: EPILEPSY
     Route: 048
  2. RITALIN [Interacting]
     Indication: ATTENTION DEFICIT/HYPERACTIVITY DISORDER
     Route: 048

REACTIONS (5)
  - ANXIETY [None]
  - DRUG INTERACTION [None]
  - HALLUCINATION [None]
  - NAUSEA [None]
  - VOMITING [None]
